FAERS Safety Report 7573258-8 (Version None)
Quarter: 2011Q2

REPORT INFORMATION
  Report Type: 
  Country: None (occurrence: None)
  Receive Date: 20110627
  Receipt Date: 20110613
  Transmission Date: 20111010
  Serious: Yes (Hospitalization)
  Sender: FDA-Public Use
  Company Number: PHHY2011CA52327

PATIENT
  Sex: Female

DRUGS (2)
  1. CHEMOTHERAPEUTICS NOS [Concomitant]
  2. ZOMETA [Suspect]
     Indication: BREAST CANCER
     Dosage: 4 MG, EVERY 6 MONTHS
     Route: 042
     Dates: start: 20110106

REACTIONS (7)
  - PAIN [None]
  - TOOTHACHE [None]
  - VOMITING [None]
  - BEDRIDDEN [None]
  - GASTROINTESTINAL INFECTION [None]
  - EATING DISORDER [None]
  - DIARRHOEA [None]
